FAERS Safety Report 9501255 (Version 2)
Quarter: 2013Q4

REPORT INFORMATION
  Report Type: Spontaneous
  Country: US (occurrence: US)
  Receive Date: 20130905
  Receipt Date: 20131001
  Transmission Date: 20140711
  Serious: Yes (Other)
  Sender: FDA-Public Use
  Company Number: US-CELGENEUS-163-21880-13084239

PATIENT
  Sex: Male

DRUGS (7)
  1. REVLIMID [Suspect]
     Indication: PLASMA CELL MYELOMA
     Dosage: 25 MILLIGRAM
     Route: 048
     Dates: start: 20120424, end: 20120814
  2. REVLIMID [Suspect]
     Dosage: 15 MILLIGRAM
     Route: 048
     Dates: start: 201206
  3. REVLIMID [Suspect]
     Dosage: 15 MILLIGRAM
     Route: 048
     Dates: start: 201308
  4. XELODA [Concomitant]
     Indication: COLON CANCER
     Dosage: 2 GRAM
     Route: 048
     Dates: start: 20121027, end: 20130720
  5. IRINOTECAN [Concomitant]
     Indication: COLON CANCER
     Dosage: 260 MILLIGRAM
     Route: 041
     Dates: start: 20121027, end: 20130720
  6. VELCADE [Concomitant]
     Indication: PLASMA CELL MYELOMA
     Route: 065
     Dates: start: 20120424, end: 20120814
  7. DEXAMETHASONE [Concomitant]
     Indication: PLASMA CELL MYELOMA
     Dosage: 40 MILLIGRAM
     Route: 048
     Dates: start: 20120424, end: 20120814

REACTIONS (1)
  - Colon cancer [Recovered/Resolved]
